FAERS Safety Report 8580575-1 (Version None)
Quarter: 2012Q3

REPORT INFORMATION
  Report Type: 
  Country: None (occurrence: None)
  Receive Date: 20120808
  Receipt Date: 20120803
  Transmission Date: 20120928
  Serious: Yes (Hospitalization)
  Sender: FDA-Public Use
  Company Number: US-BRISTOL-MYERS SQUIBB COMPANY-16835944

PATIENT
  Sex: Female

DRUGS (1)
  1. FLUOROURACIL [Suspect]

REACTIONS (1)
  - SPEECH DISORDER [None]
